FAERS Safety Report 10036464 (Version 1)
Quarter: 2014Q1

REPORT INFORMATION
  Report Type: Spontaneous
  Country: JP (occurrence: JP)
  Receive Date: 20140326
  Receipt Date: 20140326
  Transmission Date: 20141002
  Serious: Yes (Other)
  Sender: FDA-Public Use
  Company Number: CHPA2014JP004206

PATIENT
  Sex: Male

DRUGS (2)
  1. NICOTINELL CHEWING GUM MINT [Suspect]
     Indication: SMOKING CESSATION THERAPY
     Dosage: 7 TO 8 DF, QD
     Route: 048
  2. NICOTINELL CHEWING GUM MINT [Suspect]
     Route: 048
     Dates: start: 201009

REACTIONS (5)
  - Lung neoplasm malignant [Unknown]
  - Lymphoma [Unknown]
  - Dry mouth [Unknown]
  - Incorrect drug administration duration [Unknown]
  - Wrong technique in drug usage process [Unknown]
